FAERS Safety Report 6892514-X (Version None)
Quarter: 2010Q3

REPORT INFORMATION
  Report Type: 
  Country: None (occurrence: None)
  Receive Date: 20100731
  Receipt Date: 20080605
  Transmission Date: 20110219
  Serious: Yes (Hospitalization, Other)
  Sender: FDA-Public Use
  Company Number: US-PFIZER INC-2007101952

PATIENT
  Sex: Male
  Weight: 120.45 kg

DRUGS (5)
  1. CAVERJECT [Suspect]
     Indication: ERECTILE DYSFUNCTION
     Dates: start: 20070310
  2. LISINOPRIL [Concomitant]
     Indication: HYPERTENSION
  3. CELEBREX [Concomitant]
  4. MULTI-VITAMINS [Concomitant]
  5. ACETYLSALICYLIC ACID SRT [Concomitant]
     Indication: CARDIAC DISORDER

REACTIONS (3)
  - DRUG EFFECT INCREASED [None]
  - DRUG INEFFECTIVE [None]
  - ERECTION INCREASED [None]
